FAERS Safety Report 15273648 (Version 2)
Quarter: 2018Q3

REPORT INFORMATION
  Report Type: Spontaneous
  Country: US (occurrence: US)
  Receive Date: 20180813
  Receipt Date: 20180821
  Transmission Date: 20181010
  Serious: No
  Sender: FDA-Public Use
  Company Number: US-GILEAD-2018-0355357

PATIENT
  Age: 49 Year
  Sex: Female

DRUGS (4)
  1. STRIBILD [Suspect]
     Active Substance: COBICISTAT\ELVITEGRAVIR\EMTRICITABINE\TENOFOVIR DISOPROXIL FUMARATE
     Indication: PRODUCT USED FOR UNKNOWN INDICATION
     Dosage: UNK
     Route: 065
     Dates: start: 2015, end: 20180811
  2. VITAMIN D3 [Concomitant]
     Active Substance: CHOLECALCIFEROL
     Dosage: TID
  3. PREDNISONE. [Concomitant]
     Active Substance: PREDNISONE
  4. IBUPROFEN. [Concomitant]
     Active Substance: IBUPROFEN

REACTIONS (12)
  - Abnormal dreams [Unknown]
  - Dyspnoea [Unknown]
  - Paraesthesia [Unknown]
  - Discomfort [Unknown]
  - Back pain [Recovered/Resolved]
  - Presyncope [Unknown]
  - Nerve compression [Unknown]
  - Musculoskeletal stiffness [Unknown]
  - Anaemia [Unknown]
  - Pollakiuria [Unknown]
  - Hypoaesthesia [Unknown]
  - Sleep disorder [Unknown]
